FAERS Safety Report 9338475 (Version 2)
Quarter: 2013Q3

REPORT INFORMATION
  Report Type: Spontaneous
  Country: US (occurrence: US)
  Receive Date: 20130610
  Receipt Date: 20130802
  Transmission Date: 20140515
  Serious: No
  Sender: FDA-Public Use
  Company Number: US-PFIZER INC-2013174273

PATIENT
  Age: 57 Year
  Sex: Female
  Weight: 48.07 kg

DRUGS (2)
  1. CHANTIX [Suspect]
     Indication: SMOKING CESSATION THERAPY
     Dosage: 1 MG, 2X/DAY
     Dates: start: 2011
  2. LORTAB [Concomitant]
     Indication: INTERVERTEBRAL DISC DEGENERATION
     Dosage: 10/500 MG, AS NEEDED

REACTIONS (1)
  - Nausea [Not Recovered/Not Resolved]
